FAERS Safety Report 4332544-5 (Version None)
Quarter: 2004Q2

REPORT INFORMATION
  Report Type: 
  Country: None (occurrence: None)
  Receive Date: 20040401
  Receipt Date: 20040317
  Transmission Date: 20050107
  Serious: Yes (Hospitalization)
  Sender: FDA-Public Use
  Company Number: D01200400916

PATIENT
  Age: 54 Year
  Sex: Male
  Weight: 59.4 kg

DRUGS (7)
  1. CISPLATIN [Suspect]
     Indication: CARCINOMA
     Dosage: 100 MG/M2 OTHER - INTRAVENOUS NOS
     Route: 042
     Dates: start: 20040315, end: 20040315
  2. TRAMADOL HCL [Concomitant]
  3. ACETAMINOPHEN [Concomitant]
  4. BETAMETHASONE [Concomitant]
  5. ONDANSETRON HCL [Concomitant]
  6. RANITIDINE [Concomitant]
  7. METOCLOPRAMIDE [Concomitant]

REACTIONS (5)
  - APTYALISM [None]
  - HYPERGLYCAEMIA [None]
  - NAUSEA [None]
  - SYNCOPE [None]
  - VOMITING [None]
